FAERS Safety Report 18996600 (Version 1)
Quarter: 2021Q1

REPORT INFORMATION
  Report Type: Spontaneous
  Country: CA (occurrence: CA)
  Receive Date: 20210311
  Receipt Date: 20210311
  Transmission Date: 20210420
  Serious: Yes (Other)
  Sender: FDA-Public Use
  Company Number: NVSC2021CA054159

PATIENT
  Weight: 172.3 kg

DRUGS (3)
  1. TINZAPARIN [Concomitant]
     Active Substance: TINZAPARIN
     Indication: THROMBOSIS PROPHYLAXIS
     Dosage: 14000 IU
     Route: 065
  2. HEPARIN [Suspect]
     Active Substance: HEPARIN SODIUM
     Dosage: 5000 IU, ONCE/SINGLE (POST?OPERATIVE UFH)
     Route: 058
  3. HEPARIN [Suspect]
     Active Substance: HEPARIN SODIUM
     Indication: THROMBOSIS PROPHYLAXIS
     Dosage: 7500 IU, ONCE/SINGLE (PRE?OPERATIVE UFH)
     Route: 058

REACTIONS (1)
  - Haematemesis [Unknown]
